FAERS Safety Report 25099652 (Version 1)
Quarter: 2025Q1

REPORT INFORMATION
  Report Type: Spontaneous
  Country: US (occurrence: US)
  Receive Date: 20250320
  Receipt Date: 20250320
  Transmission Date: 20250409
  Serious: No
  Sender: MERCK SHARP & DOHME LLC
  Company Number: US-009507513-2261120

PATIENT
  Age: 49 Year
  Sex: Female

DRUGS (1)
  1. BELSOMRA [Suspect]
     Active Substance: SUVOREXANT
     Indication: Insomnia
     Dosage: 5 MG / ONCE NIGHTLY. STRENGTH: 5 MG
     Route: 048
     Dates: start: 20250225, end: 20250226

REACTIONS (7)
  - Discomfort [Unknown]
  - Insomnia [Unknown]
  - Retching [Unknown]
  - Ill-defined disorder [Unknown]
  - Dyspepsia [Unknown]
  - Feeling abnormal [Unknown]
  - Mass [Unknown]

NARRATIVE: CASE EVENT DATE: 20250201
